FAERS Safety Report 7562172-X (Version None)
Quarter: 2011Q2

REPORT INFORMATION
  Report Type: 
  Country: None (occurrence: None)
  Receive Date: 20110614
  Receipt Date: 20110601
  Transmission Date: 20111010
  Serious: Yes (Other)
  Sender: FDA-Public Use
  Company Number: 2011MA006656

PATIENT
  Age: 36 Year
  Sex: Male

DRUGS (1)
  1. CITALOPRAM HYDROBROMIDE [Suspect]
     Indication: PANIC ATTACK
     Dosage: 60 MG

REACTIONS (8)
  - RASH [None]
  - TENSION [None]
  - PARAESTHESIA [None]
  - DYSPNOEA [None]
  - CHEST PAIN [None]
  - DIPLOPIA [None]
  - LOSS OF LIBIDO [None]
  - MUSCLE SPASMS [None]
